FAERS Safety Report 9178948 (Version 1)
Quarter: 2013Q1

REPORT INFORMATION
  Report Type: Spontaneous
  Country: US (occurrence: US)
  Receive Date: 20130321
  Receipt Date: 20130321
  Transmission Date: 20140127
  Serious: Yes (Other)
  Sender: FDA-Public Use
  Company Number: US-AMGEN-USASP2013016784

PATIENT
  Age: 80 Year
  Sex: Female

DRUGS (23)
  1. PROLIA [Suspect]
     Indication: OSTEOPOROSIS POSTMENOPAUSAL
     Dosage: UNK
     Dates: start: 20120914
  2. PANTOPRAZOLE [Concomitant]
  3. PRESERVISION [Concomitant]
  4. ATENOLOL [Concomitant]
  5. AMLODIPINE [Concomitant]
  6. LISINOPRIL [Concomitant]
  7. MECLIZINE                          /00072801/ [Concomitant]
  8. GLUCOSAMINE CHONDROITIN            /01430901/ [Concomitant]
  9. CALCIUM WITH VITAMIN D             /00944201/ [Concomitant]
  10. VITAMIN D /00107901/ [Concomitant]
  11. RESTASIS [Concomitant]
  12. REFRESH TEARS [Concomitant]
  13. LIQUIGEL [Concomitant]
  14. METAMUCIL                          /00029101/ [Concomitant]
  15. PHENOBARBITAL [Concomitant]
  16. PREMARIN [Concomitant]
  17. TYLENOL /00020001/ [Concomitant]
  18. HYDROCODONE [Concomitant]
  19. LIDODERM [Concomitant]
  20. CLINDAMYCIN [Concomitant]
  21. HYDROCHLORTHIAZID [Concomitant]
  22. CLOTRIMAZOLE [Concomitant]
  23. HYDROXIZINE [Concomitant]

REACTIONS (9)
  - Dehydration [Unknown]
  - Hypotension [Unknown]
  - Carpal tunnel syndrome [Unknown]
  - Feeling abnormal [Unknown]
  - Frequent bowel movements [Recovered/Resolved]
  - Vertigo [Recovered/Resolved]
  - Pruritus [Unknown]
  - Weight decreased [Unknown]
  - Asthenia [Unknown]
